FAERS Safety Report 11686606 (Version 3)
Quarter: 2016Q1

REPORT INFORMATION
  Report Type: Spontaneous
  Country: US (occurrence: US)
  Receive Date: 20151030
  Receipt Date: 20160203
  Transmission Date: 20160525
  Serious: Yes (Other)
  Sender: FDA-Public Use
  Company Number: US-BAYER-2015-449305

PATIENT
  Age: 52 Year
  Sex: Female

DRUGS (3)
  1. BETASERON [Suspect]
     Active Substance: INTERFERON BETA-1B
     Indication: MULTIPLE SCLEROSIS
     Dosage: .25 MG, QOD
     Dates: start: 20150625
  2. BETASERON [Suspect]
     Active Substance: INTERFERON BETA-1B
     Indication: MULTIPLE SCLEROSIS
     Dosage: .25 MG, QOD
     Dates: start: 20150625
  3. BETASERON [Suspect]
     Active Substance: INTERFERON BETA-1B
     Indication: MULTIPLE SCLEROSIS
     Dosage: 0.25 MG, QOD
     Dates: start: 201506

REACTIONS (7)
  - Depression [None]
  - Sunburn [None]
  - Depressed mood [None]
  - Hemianaesthesia [Not Recovered/Not Resolved]
  - Depression [None]
  - Memory impairment [None]
  - Depressed mood [None]

NARRATIVE: CASE EVENT DATE: 201510
